FAERS Safety Report 26052310 (Version 1)
Quarter: 2025Q4

REPORT INFORMATION
  Report Type: Spontaneous
  Country: CN (occurrence: CN)
  Receive Date: 20251117
  Receipt Date: 20251117
  Transmission Date: 20260117
  Serious: Yes (Other)
  Sender: Long Grove Pharmaceuticals
  Company Number: CN-Long Grove-000164

PATIENT
  Age: 8 Decade
  Sex: Male

DRUGS (1)
  1. DIAZEPAM [Suspect]
     Active Substance: DIAZEPAM
     Indication: Status epilepticus

REACTIONS (2)
  - Altered state of consciousness [Recovered/Resolved]
  - Oxygen saturation decreased [Recovered/Resolved]
